FAERS Safety Report 8898424 (Version 1)
Quarter: 2012Q4

REPORT INFORMATION
  Report Type: 
  Country: US (occurrence: US)
  Receive Date: 20121108
  Receipt Date: 20121108
  Transmission Date: 20130627
  Serious: No
  Sender: FDA-Public Use
  Company Number: US-AMGEN-USASP2012026178

PATIENT
  Age: 56 Year
  Sex: Female
  Weight: 64.85 kg

DRUGS (9)
  1. ENBREL [Suspect]
     Indication: PSORIATIC ARTHROPATHY
     Dosage: 50 mg, qwk
     Route: 058
     Dates: start: 20120320
  2. SUDAFED                            /00076302/ [Concomitant]
     Dosage: 10 mg, UNK
     Route: 048
  3. METHOTREXATE [Concomitant]
     Dosage: 2.5 mg, UNK
     Route: 048
  4. TOPAMAX [Concomitant]
     Dosage: 100 mg, UNK
     Route: 048
  5. FOLIC ACID [Concomitant]
     Dosage: UNK
     Route: 048
  6. BOTOX [Concomitant]
     Dosage: 100 IU, UNK
     Route: 058
  7. LYSINE [Concomitant]
     Dosage: 500 mg, UNK
     Route: 048
  8. MULTIVITAMIN                       /00831701/ [Concomitant]
     Dosage: UNK
     Route: 048
  9. HUMIRA [Concomitant]
     Dosage: 40 mg, UNK

REACTIONS (8)
  - Epistaxis [Unknown]
  - Eye swelling [Unknown]
  - Lacrimation increased [Unknown]
  - Ocular hyperaemia [Unknown]
  - Drug ineffective [Unknown]
  - Sinusitis [Unknown]
  - Injection site swelling [Recovered/Resolved]
  - Injection site pruritus [Recovered/Resolved]
